FAERS Safety Report 14966233 (Version 3)
Quarter: 2018Q3

REPORT INFORMATION
  Report Type: Spontaneous
  Country: US (occurrence: US)
  Receive Date: 20180603
  Receipt Date: 20180801
  Transmission Date: 20181010
  Serious: Yes (Hospitalization, Disabling, Other)
  Sender: FDA-Public Use
  Company Number: US-JNJFOC-20180531629

PATIENT
  Sex: Male

DRUGS (2)
  1. INVOKANA [Suspect]
     Active Substance: CANAGLIFLOZIN
     Indication: DIABETES MELLITUS
     Route: 048
  2. INVOKANA [Suspect]
     Active Substance: CANAGLIFLOZIN
     Indication: DIABETES MELLITUS
     Route: 048
     Dates: start: 20160801, end: 20180314

REACTIONS (4)
  - Localised infection [Recovering/Resolving]
  - Diabetic foot [Recovering/Resolving]
  - Limb amputation [Recovering/Resolving]
  - Osteomyelitis acute [Recovered/Resolved]

NARRATIVE: CASE EVENT DATE: 2016
